FAERS Safety Report 10283161 (Version 1)
Quarter: 2014Q3

REPORT INFORMATION
  Report Type: Spontaneous
  Country: US (occurrence: US)
  Receive Date: 20140708
  Receipt Date: 20140708
  Transmission Date: 20150326
  Serious: No
  Sender: FDA-Public Use
  Company Number: US-ASTRAZENECA-2014SE47442

PATIENT
  Sex: Female
  Weight: 5 kg

DRUGS (1)
  1. NEXIUM [Suspect]
     Active Substance: ESOMEPRAZOLE MAGNESIUM
     Indication: GASTROOESOPHAGEAL REFLUX DISEASE
     Route: 048
     Dates: start: 20140618

REACTIONS (5)
  - Infantile spitting up [Unknown]
  - Grunting [Unknown]
  - Musculoskeletal discomfort [Unknown]
  - Crying [Unknown]
  - Off label use [Unknown]
